FAERS Safety Report 6658725-3 (Version None)
Quarter: 2010Q1

REPORT INFORMATION
  Report Type: 
  Country: None (occurrence: None)
  Receive Date: 20100330
  Receipt Date: 20100322
  Transmission Date: 20100710
  Serious: Yes (Hospitalization)
  Sender: FDA-Public Use
  Company Number: PHHO2010US04493

PATIENT
  Sex: Female
  Weight: 64 kg

DRUGS (2)
  1. AFINITOR [Suspect]
     Indication: NON-SMALL CELL LUNG CANCER
     Dosage: 2.5 MG DAILY
     Route: 048
     Dates: start: 20081126, end: 20100318
  2. ERLOTINIB [Suspect]
     Indication: NON-SMALL CELL LUNG CANCER
     Dosage: 2.5 MG DAILY
     Route: 048
     Dates: start: 20081126, end: 20100318

REACTIONS (4)
  - GASTROINTESTINAL TUBE INSERTION [None]
  - INTESTINAL OBSTRUCTION [None]
  - METASTASES TO PERITONEUM [None]
  - VOMITING [None]
